FAERS Safety Report 25054363 (Version 1)
Quarter: 2025Q1

REPORT INFORMATION
  Report Type: Spontaneous
  Country: US (occurrence: US)
  Receive Date: 20250307
  Receipt Date: 20250307
  Transmission Date: 20250409
  Serious: No
  Sender: SANOFI AVENTIS
  Company Number: US-SANOFI-02432861

PATIENT
  Age: 58 Year
  Sex: Male

DRUGS (4)
  1. TOUJEO MAX [Suspect]
     Active Substance: INSULIN GLARGINE
     Indication: Type 2 diabetes mellitus
  2. HUMALOG [Concomitant]
     Active Substance: INSULIN LISPRO
     Dosage: QD
  3. OZEMPIC [Concomitant]
     Active Substance: SEMAGLUTIDE
     Dosage: 2.000MG QW
  4. METFORMIN [Concomitant]
     Active Substance: METFORMIN HYDROCHLORIDE
     Dosage: 1000MG,BID

REACTIONS (5)
  - Intervertebral disc protrusion [Unknown]
  - Movement disorder [Unknown]
  - Asthma [Unknown]
  - Hypersensitivity [Unknown]
  - Intentional product misuse [Unknown]
